FAERS Safety Report 12692872 (Version 1)
Quarter: 2016Q3

REPORT INFORMATION
  Report Type: Spontaneous
  Country: US (occurrence: None)
  Receive Date: 20160826
  Receipt Date: 20160826
  Transmission Date: 20161109
  Serious: No
  Sender: FDA-Public Use
  Company Number: None

PATIENT

DRUGS (2)
  1. CEFAZOLIN 1GM/NS 100CC [Suspect]
     Active Substance: CEFAZOLIN
  2. CEFAZOLIN 2GM/NS 100CC [Suspect]
     Active Substance: CEFAZOLIN

REACTIONS (3)
  - Drug prescribing error [None]
  - Transcription medication error [None]
  - Drug dispensing error [None]
